FAERS Safety Report 7902037-4 (Version None)
Quarter: 2011Q4

REPORT INFORMATION
  Report Type: 
  Country: None (occurrence: None)
  Receive Date: 20111108
  Receipt Date: 20111028
  Transmission Date: 20120403
  Serious: Yes (Congenital Anomaly)
  Sender: FDA-Public Use
  Company Number: US-GLAXOSMITHKLINE-A0950764A

PATIENT
  Sex: Male

DRUGS (4)
  1. AMOXICILLIN [Concomitant]
  2. PAXIL CR [Suspect]
     Indication: ANXIETY
     Dosage: 37.5MG PER DAY
     Route: 048
  3. TIGAN [Concomitant]
  4. KEFLEX [Concomitant]

REACTIONS (3)
  - CARDIAC MURMUR [None]
  - ATRIAL SEPTAL DEFECT [None]
  - FOETAL EXPOSURE DURING PREGNANCY [None]
